FAERS Safety Report 6571823-8 (Version None)
Quarter: 2010Q1

REPORT INFORMATION
  Report Type: 
  Country: None (occurrence: None)
  Receive Date: 20100205
  Receipt Date: 20100125
  Transmission Date: 20100710
  Serious: Yes (Hospitalization, Other)
  Sender: FDA-Public Use
  Company Number: US-BAYER-200941608NA

PATIENT
  Age: 22 Year
  Sex: Female
  Weight: 59 kg

DRUGS (4)
  1. MIRENA [Suspect]
     Indication: CONTRACEPTION
     Dosage: CONTINUOUS
     Route: 015
     Dates: start: 20090922
  2. NYSTATIN /TRISINICONE OINTMENT [Concomitant]
  3. BENADRYL [Concomitant]
  4. MYCOLOG [Concomitant]
     Indication: FUNGAL INFECTION

REACTIONS (20)
  - ANXIETY [None]
  - APPENDICITIS [None]
  - CHILLS [None]
  - CONTACT LENS INTOLERANCE [None]
  - FUNGAL INFECTION [None]
  - GENITAL SWELLING [None]
  - HEADACHE [None]
  - IRRITABILITY [None]
  - MEDICAL DEVICE COMPLICATION [None]
  - MOOD SWINGS [None]
  - NAUSEA [None]
  - OCULAR HYPERAEMIA [None]
  - OEDEMA PERIPHERAL [None]
  - PAIN [None]
  - PYREXIA [None]
  - VAGINAL HAEMORRHAGE [None]
  - VAGINAL INFECTION [None]
  - VOMITING [None]
  - VULVOVAGINAL MYCOTIC INFECTION [None]
  - WEIGHT INCREASED [None]
